FAERS Safety Report 5876891-4 (Version None)
Quarter: 2008Q3

REPORT INFORMATION
  Report Type: 
  Country: None (occurrence: None)
  Receive Date: 20080910
  Receipt Date: 20080829
  Transmission Date: 20090109
  Serious: Yes (Death)
  Sender: FDA-Public Use
  Company Number: JP-ABBOTT-08P-087-0475210-00

PATIENT
  Sex: Male

DRUGS (10)
  1. LEUPROLIDE ACETATE [Suspect]
     Indication: PROSTATE CANCER STAGE II
     Route: 058
     Dates: start: 20080318, end: 20080318
  2. LEUPROLIDE ACETATE [Suspect]
     Route: 058
     Dates: start: 20060905, end: 20060905
  3. LEUPROLIDE ACETATE [Suspect]
     Route: 058
     Dates: start: 20061205, end: 20061205
  4. LEUPROLIDE ACETATE [Suspect]
     Route: 058
     Dates: start: 20070313, end: 20070313
  5. LEUPROLIDE ACETATE [Suspect]
     Route: 058
     Dates: start: 20070605, end: 20070605
  6. LEUPROLIDE ACETATE [Suspect]
     Route: 058
     Dates: start: 20070828, end: 20070828
  7. CANDESARTAN CILEXETIL [Concomitant]
     Indication: HYPERTENSION
     Route: 048
  8. METILDIGOXIN [Concomitant]
     Indication: CARDIAC FAILURE
     Route: 048
  9. CIPRALAN [Concomitant]
     Indication: ARRHYTHMIA
     Route: 048
  10. PANTETHINE [Concomitant]
     Indication: HYPERLIPIDAEMIA
     Route: 048

REACTIONS (1)
  - CARDIAC FAILURE [None]
